FAERS Safety Report 7269852-4 (Version None)
Quarter: 2010Q4

REPORT INFORMATION
  Report Type: 
  Country: None (occurrence: None)
  Receive Date: 20101130
  Receipt Date: 20090804
  Transmission Date: 20110411
  Serious: Yes (Hospitalization)
  Sender: FDA-Public Use
  Company Number: 2008-185833-NL

PATIENT
  Age: 33 Year
  Sex: Female
  Weight: 49.9 kg

DRUGS (20)
  1. NUVARING [Suspect]
     Indication: DYSMENORRHOEA
     Dates: start: 20050901, end: 20071224
  2. NUVARING [Suspect]
     Indication: MENSTRUATION IRREGULAR
     Dates: start: 20050901, end: 20071224
  3. ZYRTEC [Concomitant]
  4. SINGULAIR [Concomitant]
  5. VERAMYST [Concomitant]
  6. FLUTICASONE PROPIONATE [Concomitant]
  7. IBUPROFEN [Concomitant]
  8. DIFFERIN [Concomitant]
  9. BREVOXYL-4 [Concomitant]
  10. CIPRO [Concomitant]
  11. GUAIFEN PSE [Concomitant]
  12. KETEK [Concomitant]
  13. FLONASE [Concomitant]
  14. ALPHAQUIN [Concomitant]
  15. GUAIFENEX GP [Concomitant]
  16. AZITHROMYCIN [Concomitant]
  17. AMOXICILLIN [Concomitant]
  18. ZYRTEC-D 12 HOUR [Concomitant]
  19. CLINDAMYCIN [Concomitant]
  20. APAP W/ CODEINE [Concomitant]

REACTIONS (13)
  - ARTHRALGIA [None]
  - BLOOD GLUCOSE ABNORMAL [None]
  - CONTUSION [None]
  - HUMAN BITE [None]
  - HYDRONEPHROSIS [None]
  - OFF LABEL USE [None]
  - OVARIAN CYST RUPTURED [None]
  - PULMONARY EMBOLISM [None]
  - RHINITIS ALLERGIC [None]
  - SINUS DISORDER [None]
  - URINARY TRACT INFECTION [None]
  - UTERINE LEIOMYOMA [None]
  - VERTIGO POSITIONAL [None]
